FAERS Safety Report 9833152 (Version 1)
Quarter: 2014Q1

REPORT INFORMATION
  Report Type: Spontaneous
  Country: US (occurrence: US)
  Receive Date: 20140121
  Receipt Date: 20140121
  Transmission Date: 20141002
  Serious: No
  Sender: FDA-Public Use
  Company Number: US-BAUSCH-BL-2012-002017

PATIENT
  Age: 60 Year
  Sex: Female

DRUGS (7)
  1. ALAWAY [Suspect]
     Indication: EYE PRURITUS
     Dosage: 1 DROP IN MORNING AND EVENING AS NEEDED
     Route: 047
     Dates: start: 201209
  2. ALAWAY [Suspect]
     Dosage: REDUCED DOSE TO ONCE DAILY
     Route: 047
  3. LEVOTHYROXINE [Concomitant]
     Indication: HYPOTHYROIDISM
  4. TRAZODONE [Concomitant]
     Indication: SLEEP DISORDER
  5. AMLODIPINE BESILATE [Concomitant]
     Indication: HYPERTENSION
  6. PRAVASTATIN [Concomitant]
     Indication: BLOOD CHOLESTEROL INCREASED
     Dosage: ONCE DAILY
     Route: 048
  7. MACROGOL [Concomitant]
     Indication: IRRITABLE BOWEL SYNDROME

REACTIONS (1)
  - Eye irritation [Recovering/Resolving]
